FAERS Safety Report 11031725 (Version 2)
Quarter: 2015Q2

REPORT INFORMATION
  Report Type: Spontaneous
  Country: JP (occurrence: JP)
  Receive Date: 20150415
  Receipt Date: 20150520
  Transmission Date: 20150821
  Serious: Yes (Death)
  Sender: FDA-Public Use
  Company Number: JP-PFIZER INC-2015126918

PATIENT
  Age: 76 Year
  Sex: Male

DRUGS (2)
  1. ZYVOX [Suspect]
     Active Substance: LINEZOLID
     Dosage: UNK
     Dates: start: 201305, end: 20130605
  2. MICAFUNGIN [Suspect]
     Active Substance: MICAFUNGIN

REACTIONS (2)
  - Pneumonia [Fatal]
  - Disease progression [Fatal]

NARRATIVE: CASE EVENT DATE: 20130607
